FAERS Safety Report 6354477-5 (Version None)
Quarter: 2009Q3

REPORT INFORMATION
  Report Type: 
  Country: None (occurrence: None)
  Receive Date: 20090914
  Receipt Date: 20090901
  Transmission Date: 20100115
  Serious: Yes (Hospitalization, Other)
  Sender: FDA-Public Use
  Company Number: JP-NOVOPROD-288077

PATIENT
  Sex: Female
  Weight: 56 kg

DRUGS (6)
  1. NOVORAPID 30 MIX CHU PENFILL [Suspect]
     Indication: TYPE 2 DIABETES MELLITUS
     Dosage: 9 TO 21 IU, QD
     Route: 058
     Dates: start: 20090302, end: 20090320
  2. NOVORAPID 30 MIX CHU PENFILL [Suspect]
     Dosage: 4 IU, QD
     Route: 058
  3. NOVOLIN R [Suspect]
     Indication: TYPE 2 DIABETES MELLITUS
     Dosage: 2 TO 21 IU, QD
     Route: 058
     Dates: start: 20090321
  4. DIOVAN                             /01319601/ [Concomitant]
     Indication: HYPERTENSION
     Dosage: 80 MG, QD
     Route: 048
     Dates: start: 20090201, end: 20090301
  5. ADALAT [Concomitant]
     Indication: HYPERTENSION
     Dosage: 20 MG, QD
     Route: 048
     Dates: start: 20090201, end: 20090301
  6. NU-LOTAN [Concomitant]
     Indication: HYPERTENSION
     Dosage: 25 MG, QD
     Route: 048
     Dates: start: 20090321

REACTIONS (3)
  - ANTI-INSULIN ANTIBODY INCREASED [None]
  - HYPERGLYCAEMIA [None]
  - HYPOGLYCAEMIA [None]
